FAERS Safety Report 20796969 (Version 1)
Quarter: 2022Q2

REPORT INFORMATION
  Report Type: Spontaneous
  Country: US (occurrence: None)
  Receive Date: 20220506
  Receipt Date: 20220506
  Transmission Date: 20220720
  Serious: Yes (Other)
  Sender: FDA-Public Use
  Company Number: 2022A169766

PATIENT
  Sex: Male
  Weight: 68 kg

DRUGS (4)
  1. PRILOSEC [Suspect]
     Active Substance: OMEPRAZOLE MAGNESIUM
     Route: 048
  2. PROTONIX [Suspect]
     Active Substance: PANTOPRAZOLE SODIUM
     Route: 065
  3. GABAPENTIN [Concomitant]
     Active Substance: GABAPENTIN
  4. DIAZEPAM [Concomitant]
     Active Substance: DIAZEPAM

REACTIONS (8)
  - Retro-orbital neoplasm [Unknown]
  - Rheumatoid arthritis [Unknown]
  - Head discomfort [Unknown]
  - Jaw clicking [Unknown]
  - Pain [Unknown]
  - Protein total abnormal [Unknown]
  - Hypoaesthesia [Unknown]
  - Dementia [Unknown]
